FAERS Safety Report 5141842-7 (Version None)
Quarter: 2006Q4

REPORT INFORMATION
  Report Type: 
  Country: None (occurrence: None)
  Receive Date: 20061027
  Receipt Date: 20061013
  Transmission Date: 20070319
  Serious: Yes (Other)
  Sender: FDA-Public Use
  Company Number: 14990

PATIENT
  Age: 42 Year
  Sex: Female

DRUGS (10)
  1. CYTOSINE ARABINOSIDE. MFR: NOT SPECIFIED [Suspect]
     Indication: ACUTE LYMPHOCYTIC LEUKAEMIA
     Dosage: 1 G/M2 PER_CYCLE
     Dates: start: 20020101
  2. CYTOSINE ARABINOSIDE, MFR: NOT SPECIFIED [Suspect]
     Indication: ACUTE LYMPHOCYTIC LEUKAEMIA
     Dosage: 1 G/M2 PER_CYCLE
  3. DAUNORUBICIN HCL [Suspect]
     Indication: ACUTE LYMPHOCYTIC LEUKAEMIA
     Dosage: 25 MG/M2 WEEKLY
     Dates: start: 20020101
  4. METHOTREXATE [Suspect]
     Indication: ACUTE LYMPHOCYTIC LEUKAEMIA
     Dates: start: 20020101
  5. METHYLPREDNISOLONE [Suspect]
     Indication: ACUTE LYMPHOCYTIC LEUKAEMIA
     Dosage: 48 MG/M2 WEEKLY
     Dates: start: 20020101
  6. METHYLPREDNISOLONE [Suspect]
     Indication: ACUTE LYMPHOCYTIC LEUKAEMIA
     Dosage: 48 MG QD
  7. VINCRISTINE [Suspect]
     Indication: ACUTE LYMPHOCYTIC LEUKAEMIA
     Dosage: 2 MG WEEKLY
     Dates: start: 20020101
  8. VINCRISTINE [Suspect]
     Dosage: 2 MG WEEKLY
  9. FLUDARABINE [Suspect]
     Dosage: 30 MG/M2 PER_CYCLE
     Dates: start: 20020101
  10. FLUDARABINE [Suspect]
     Dosage: 30 MG/M2 PER_CYCLE

REACTIONS (14)
  - CANDIDIASIS [None]
  - ERYTHEMA [None]
  - FEBRILE NEUTROPENIA [None]
  - HAEMORRHAGE [None]
  - INDURATION [None]
  - LOCAL SWELLING [None]
  - ODYNOPHAGIA [None]
  - OESOPHAGEAL ULCER [None]
  - PYREXIA [None]
  - SKIN LESION [None]
  - THROMBOCYTOPENIA [None]
  - THYROID CYST [None]
  - THYROID GLAND ABSCESS [None]
  - WHITE BLOOD CELL COUNT INCREASED [None]
